FAERS Safety Report 13091405 (Version 1)
Quarter: 2017Q1

REPORT INFORMATION
  Report Type: Spontaneous
  Country: US (occurrence: US)
  Receive Date: 20170106
  Receipt Date: 20170106
  Transmission Date: 20170428
  Serious: No
  Sender: FDA-Public Use
  Company Number: US-DRREDDYS-USA/USA/16/0082830

PATIENT
  Age: 37 Year
  Sex: Female
  Weight: 92.99 kg

DRUGS (1)
  1. HABITROL [Suspect]
     Active Substance: NICOTINE
     Indication: SMOKING CESSATION THERAPY
     Route: 062
     Dates: start: 20160819

REACTIONS (4)
  - Wrong technique in product usage process [Unknown]
  - Product adhesion issue [Unknown]
  - Application site haemorrhage [Unknown]
  - Application site burn [Unknown]
